FAERS Safety Report 10396697 (Version 1)
Quarter: 2014Q3

REPORT INFORMATION
  Report Type: Spontaneous
  Country: CA (occurrence: CA)
  Receive Date: 20140820
  Receipt Date: 20140820
  Transmission Date: 20150326
  Serious: Yes (Other)
  Sender: FDA-Public Use
  Company Number: CA-GLAXOSMITHKLINE-A1085420A

PATIENT
  Age: 48 Year
  Sex: Female
  Weight: 70 kg

DRUGS (10)
  1. CALCIUM CARBONATE + VITAMIN D [Concomitant]
  2. IMOVANE [Concomitant]
     Active Substance: ZOPICLONE
  3. VALTREX [Suspect]
     Active Substance: VALACYCLOVIR HYDROCHLORIDE
     Indication: PRODUCT USED FOR UNKNOWN INDICATION
     Dosage: 1000MG TWICE PER DAY
     Route: 048
  4. COLACE [Concomitant]
     Active Substance: DOCUSATE SODIUM
     Dosage: 100MG PER DAY
  5. MACROGOL [Concomitant]
     Active Substance: POLYETHYLENE GLYCOLS
     Dosage: 17G PER DAY
  6. STEMETIL [Concomitant]
     Active Substance: PROCHLORPERAZINE MALEATE
  7. GEMCITABINE [Suspect]
     Active Substance: GEMCITABINE\GEMCITABINE HYDROCHLORIDE
     Indication: PRODUCT USED FOR UNKNOWN INDICATION
     Dosage: 1000MGM2 CYCLIC
     Route: 065
  8. PANTOLOC [Concomitant]
     Active Substance: PANTOPRAZOLE SODIUM
  9. DOMPERIDONE [Concomitant]
     Active Substance: DOMPERIDONE
  10. PANCREATIN [Concomitant]
     Active Substance: PANCRELIPASE
     Dosage: 1000IU THREE TIMES PER DAY

REACTIONS (1)
  - Thrombotic thrombocytopenic purpura [Recovered/Resolved]
